FAERS Safety Report 6646500-5 (Version None)
Quarter: 2010Q1

REPORT INFORMATION
  Report Type: 
  Country: None (occurrence: None)
  Receive Date: 20100322
  Receipt Date: 20100322
  Transmission Date: 20100710
  Serious: No
  Sender: FDA-Public Use
  Company Number: None

PATIENT
  Sex: Female

DRUGS (2)
  1. DYAZIDE [Suspect]
  2. NORVASC [Suspect]

REACTIONS (1)
  - BLOOD PRESSURE INADEQUATELY CONTROLLED [None]
